FAERS Safety Report 14474639 (Version 1)
Quarter: 2018Q1

REPORT INFORMATION
  Report Type: Report from Study
  Country: MX (occurrence: MX)
  Receive Date: 20180201
  Receipt Date: 20180201
  Transmission Date: 20180509
  Serious: Yes (Other)
  Sender: FDA-Public Use
  Company Number: PHHY2018MX014705

PATIENT
  Age: 79 Year
  Sex: Male
  Weight: 100 kg

DRUGS (4)
  1. ASPIRINE PROTECT [Concomitant]
     Active Substance: ASPIRIN
     Indication: CARDIAC DISORDER
     Dosage: 1 DF, QD
     Route: 048
     Dates: start: 201708
  2. VALSARTAN. [Concomitant]
     Active Substance: VALSARTAN
     Indication: HYPERTENSION
     Dosage: 2 DF (80), QD
     Route: 048
     Dates: start: 201709, end: 201801
  3. METOPROLOL. [Suspect]
     Active Substance: METOPROLOL
     Indication: HYPERTENSION
     Dosage: 0.5 MG, BID (? IN THE MORNING AND ? IN THE NIGHT )
     Route: 065
  4. FUROSEMIDE. [Concomitant]
     Active Substance: FUROSEMIDE
     Indication: FLUID RETENTION
     Dosage: 0.5 DF, (EVERY THIRD DAY)
     Route: 048
     Dates: start: 201705

REACTIONS (2)
  - Diabetes mellitus [Recovering/Resolving]
  - Prostatic disorder [Unknown]

NARRATIVE: CASE EVENT DATE: 201709
